FAERS Safety Report 8375157-0 (Version None)
Quarter: 2012Q2

REPORT INFORMATION
  Report Type: 
  Country: None (occurrence: None)
  Receive Date: 20120521
  Receipt Date: 20120507
  Transmission Date: 20120825
  Serious: Yes (Other)
  Sender: FDA-Public Use
  Company Number: CHPA2012US010632

PATIENT
  Sex: Male

DRUGS (1)
  1. EXCEDRIN BACK \+ BODY CAPLETS [Suspect]
     Indication: MIGRAINE
     Dosage: 2 DF PRN
     Route: 048
     Dates: start: 20090101, end: 20120301

REACTIONS (2)
  - HELICOBACTER INFECTION [None]
  - OFF LABEL USE [None]
